FAERS Safety Report 22252416 (Version 3)
Quarter: 2023Q2

REPORT INFORMATION
  Report Type: Report from Study
  Country: US (occurrence: US)
  Receive Date: 20230426
  Receipt Date: 20230608
  Transmission Date: 20230722
  Serious: Yes (Hospitalization, Other)
  Sender: FDA-Public Use
  Company Number: US-JAZZ PHARMACEUTICALS-2023-US-009267

PATIENT
  Sex: Female

DRUGS (1)
  1. XYWAV [Suspect]
     Active Substance: CALCIUM OXYBATE\MAGNESIUM OXYBATE\POTASSIUM OXYBATE\SODIUM OXYBATE
     Indication: Hypersomnia
     Dosage: UNK
     Dates: start: 20230417, end: 20230421

REACTIONS (10)
  - Pain [Unknown]
  - Dyspnoea [Unknown]
  - Incoherent [Unknown]
  - Crying [Unknown]
  - Bone pain [Unknown]
  - Dizziness [Unknown]
  - Fatigue [Unknown]
  - Feeling jittery [Unknown]
  - Headache [Unknown]
  - Product dose omission issue [Unknown]
